FAERS Safety Report 10524391 (Version 1)
Quarter: 2014Q4

REPORT INFORMATION
  Report Type: Spontaneous
  Country: US (occurrence: None)
  Receive Date: 20141015
  Receipt Date: 20141015
  Transmission Date: 20150528
  Serious: No
  Sender: FDA-Public Use
  Company Number: None

PATIENT

DRUGS (3)
  1. POTASSIUM CHLORIDE. [Suspect]
     Active Substance: POTASSIUM CHLORIDE
     Dosage: INJECTABLE INJECTION IV BAG
  2. STERILE WATER FOR INJECTION [Suspect]
     Active Substance: WATER
     Dosage: INJECTABLE INJECTION IV BAG 1,000 ML
  3. LACTATED RINGERS [Suspect]
     Active Substance: CALCIUM CHLORIDE\POTASSIUM CHLORIDE\SODIUM CHLORIDE\SODIUM LACTATE
     Dosage: INJECTABLE INJECTION IV BAG

REACTIONS (2)
  - Product label confusion [None]
  - Intercepted medication error [None]
